FAERS Safety Report 4467807-6 (Version None)
Quarter: 2004Q4

REPORT INFORMATION
  Report Type: 
  Country: None (occurrence: None)
  Receive Date: 20041004
  Receipt Date: 20040920
  Transmission Date: 20050328
  Serious: Yes (Death, Hospitalization)
  Sender: FDA-Public Use
  Company Number: 04-0042PO F/U #1

PATIENT
  Age: 15 Year
  Sex: Female
  Weight: 73 kg

DRUGS (2)
  1. PONSTEL [Suspect]
     Dosage: 10 CAPSULES PO
     Route: 048
  2. AMLODIPINE [Suspect]
     Dosage: 14 TABLETS PO
     Route: 048

REACTIONS (9)
  - CYANOSIS [None]
  - DYSPNOEA [None]
  - HEART RATE INCREASED [None]
  - HYPOTENSION [None]
  - INTENTIONAL OVERDOSE [None]
  - MUSCLE SPASMS [None]
  - PULMONARY CONGESTION [None]
  - PULMONARY OEDEMA [None]
  - RESPIRATORY ARREST [None]
